FAERS Safety Report 9565958 (Version 1)
Quarter: 2013Q3

REPORT INFORMATION
  Report Type: Spontaneous
  Country: DK (occurrence: FR)
  Receive Date: 20130930
  Receipt Date: 20130930
  Transmission Date: 20140515
  Serious: Yes (Hospitalization)
  Sender: FDA-Public Use
  Company Number: FR-FRI-1000049245

PATIENT
  Age: 85 Year
  Sex: Male

DRUGS (4)
  1. ESCITALOPRAM [Suspect]
     Indication: DEPRESSION
     Dosage: 1 DF
     Route: 048
     Dates: end: 20120307
  2. FLUDEX [Interacting]
     Indication: HYPERTENSION
     Dosage: 1 DF
     Route: 048
     Dates: end: 20120307
  3. VALDOXAN [Interacting]
     Indication: DEPRESSION
     Dosage: 2 DF
     Route: 048
     Dates: start: 20120220, end: 20120307
  4. SERESTA [Concomitant]
     Dosage: 3 DF
     Route: 048

REACTIONS (2)
  - Hyponatraemia [Recovered/Resolved]
  - Drug interaction [Recovered/Resolved]
